FAERS Safety Report 7350250-X (Version None)
Quarter: 2011Q1

REPORT INFORMATION
  Report Type: 
  Country: None (occurrence: None)
  Receive Date: 20110303
  Receipt Date: 20090603
  Transmission Date: 20110831
  Serious: No
  Sender: FDA-Public Use
  Company Number: 2009-01103

PATIENT
  Age: 26 Year
  Sex: Female
  Weight: 77.1115 kg

DRUGS (2)
  1. FLONASE [Concomitant]
  2. ZICAM COLD REMEDY RAPIDMELTS WITH VITAMIN C [Suspect]
     Indication: NASOPHARYNGITIS
     Dosage: 4 DOSES

REACTIONS (1)
  - AGEUSIA [None]
